FAERS Safety Report 21670581 (Version 1)
Quarter: 2022Q4

REPORT INFORMATION
  Report Type: Spontaneous
  Country: CR (occurrence: None)
  Receive Date: 20221201
  Receipt Date: 20221201
  Transmission Date: 20230113
  Serious: Yes (Hospitalization)
  Sender: FDA-Public Use
  Company Number: CR-ROCHE-3229063

PATIENT

DRUGS (1)
  1. CLONAZEPAM [Suspect]
     Active Substance: CLONAZEPAM
     Indication: Product used for unknown indication
     Dosage: DOSE AND FREQUENCY WERE NOT REPORTED
     Route: 065

REACTIONS (1)
  - Toxicity to various agents [Unknown]
